FAERS Safety Report 6694511-6 (Version None)
Quarter: 2010Q2

REPORT INFORMATION
  Report Type: 
  Country: None (occurrence: None)
  Receive Date: 20100420
  Receipt Date: 20100408
  Transmission Date: 20101027
  Serious: Yes (Hospitalization)
  Sender: FDA-Public Use
  Company Number: WAES 1004USA01476

PATIENT
  Age: 71 Year
  Sex: Female

DRUGS (2)
  1. FOSAMAX [Suspect]
     Indication: OSTEOPOROSIS
     Dosage: 35 MG/WKY
     Route: 048
     Dates: start: 20090609
  2. CALCIUM CARBONATE [Suspect]
     Indication: OSTEOPOROSIS
     Dosage: 2 TAB/DAILY
     Route: 048
     Dates: start: 20090513

REACTIONS (1)
  - RETINAL DETACHMENT [None]
